FAERS Safety Report 25277332 (Version 2)
Quarter: 2025Q2

REPORT INFORMATION
  Report Type: Report from Study
  Country: CA (occurrence: CA)
  Receive Date: 20250507
  Receipt Date: 20250514
  Transmission Date: 20250717
  Serious: Yes (Other)
  Sender: TAKEDA
  Company Number: CA-TAKEDA-2023TUS060015

PATIENT
  Age: 46 Year
  Sex: Male

DRUGS (6)
  1. HUMAN IMMUNOGLOBULIN G [Suspect]
     Active Substance: HUMAN IMMUNOGLOBULIN G
     Indication: Chronic inflammatory demyelinating polyradiculoneuropathy
     Dosage: UNK UNK, 1/WEEK
     Dates: start: 20230614
  2. HUMAN IMMUNOGLOBULIN G [Suspect]
     Active Substance: HUMAN IMMUNOGLOBULIN G
     Dosage: 23 GRAM, 1/WEEK
  3. HUMAN IMMUNOGLOBULIN G [Suspect]
     Active Substance: HUMAN IMMUNOGLOBULIN G
     Dosage: 23 GRAM, 1/WEEK
  4. SYNTHROID [Concomitant]
     Active Substance: LEVOTHYROXINE SODIUM
  5. PREGABALIN [Concomitant]
     Active Substance: PREGABALIN
  6. CUTAQUIG [Concomitant]
     Active Substance: HUMAN IMMUNOGLOBULIN G

REACTIONS (2)
  - Arnold-Chiari malformation [Unknown]
  - Off label use [Unknown]

NARRATIVE: CASE EVENT DATE: 20230614
